FAERS Safety Report 6609797-3 (Version None)
Quarter: 2010Q1

REPORT INFORMATION
  Report Type: 
  Country: None (occurrence: None)
  Receive Date: 20100302
  Receipt Date: 20100219
  Transmission Date: 20100710
  Serious: Yes (Other)
  Sender: FDA-Public Use
  Company Number: US-ELI_LILLY_AND_COMPANY-US201002005488

PATIENT
  Sex: Female

DRUGS (5)
  1. BYETTA [Suspect]
     Indication: TYPE 2 DIABETES MELLITUS
     Dosage: 5 UG, 2/D
     Route: 058
     Dates: start: 20080101
  2. BYETTA [Suspect]
     Dosage: 10 UG, 2/D
     Route: 058
  3. ACTOS [Concomitant]
     Indication: TYPE 2 DIABETES MELLITUS
     Dosage: 15 MG, AS NEEDED
  4. GLUCOVANCE [Concomitant]
     Indication: TYPE 2 DIABETES MELLITUS
     Dosage: 1 D/F, EACH MORNING
  5. GLUCOVANCE [Concomitant]
     Dosage: 2 D/F, EACH EVENING

REACTIONS (12)
  - ABDOMINAL DISTENSION [None]
  - ARTHROPATHY [None]
  - BACK PAIN [None]
  - BLOOD GLUCOSE INCREASED [None]
  - DYSPEPSIA [None]
  - GASTRIC DISORDER [None]
  - INFLAMMATION [None]
  - LOSS OF CONSCIOUSNESS [None]
  - NAUSEA [None]
  - NERVE COMPRESSION [None]
  - ROAD TRAFFIC ACCIDENT [None]
  - VOMITING [None]
